FAERS Safety Report 5447049-8 (Version None)
Quarter: 2007Q3

REPORT INFORMATION
  Report Type: 
  Country: None (occurrence: None)
  Receive Date: 20070801
  Receipt Date: 20070515
  Transmission Date: 20080115
  Serious: Yes (Other)
  Sender: FDA-Public Use
  Company Number: 156442USA

PATIENT
  Age: 15 Year
  Sex: Female

DRUGS (1)
  1. SALBUTAMOL SULFATE INHALATION, 0.09 MG (SALBUTAMOL) [Suspect]
     Indication: ASTHMA
     Dosage: RESPIRATORY (INHALATION)
     Route: 055
     Dates: start: 20070101

REACTIONS (2)
  - ERYTHEMA [None]
  - THROAT TIGHTNESS [None]
